FAERS Safety Report 13924830 (Version 1)
Quarter: 2017Q3

REPORT INFORMATION
  Report Type: Other
  Country: CA (occurrence: CA)
  Receive Date: 20170831
  Receipt Date: 20170831
  Transmission Date: 20171127
  Serious: Yes (Death, Other)
  Sender: FDA-Public Use
  Company Number: CA-APOTEX-2017AP017154

PATIENT
  Age: 86 Year
  Sex: Male

DRUGS (2)
  1. APO-AMIODARONE [Suspect]
     Active Substance: AMIODARONE
     Indication: PRODUCT USED FOR UNKNOWN INDICATION
     Route: 065
  2. DIPHENHYDRAMINE. [Concomitant]
     Active Substance: DIPHENHYDRAMINE
     Indication: PRODUCT USED FOR UNKNOWN INDICATION
     Route: 065

REACTIONS (12)
  - Pulmonary oedema [Fatal]
  - Cardiac arrest [Fatal]
  - Asthenia [Fatal]
  - Traumatic lung injury [Fatal]
  - Fasting [Fatal]
  - Impatience [Fatal]
  - Overdose [Fatal]
  - Acute respiratory distress syndrome [Fatal]
  - Respiratory arrest [Fatal]
  - Pulmonary congestion [Fatal]
  - Dizziness [Fatal]
  - Confusional state [Fatal]
